FAERS Safety Report 24674195 (Version 1)
Quarter: 2024Q4

REPORT INFORMATION
  Report Type: Spontaneous
  Country: US (occurrence: US)
  Receive Date: 20241128
  Receipt Date: 20241128
  Transmission Date: 20250114
  Serious: Yes (Hospitalization)
  Sender: STRIDES
  Company Number: US-STRIDES ARCOLAB LIMITED-2024SP015383

PATIENT
  Age: 45 Year
  Sex: Male

DRUGS (2)
  1. TACROLIMUS [Suspect]
     Active Substance: TACROLIMUS
     Indication: Product used for unknown indication
     Dosage: UNK
     Route: 065
  2. TACROLIMUS [Suspect]
     Active Substance: TACROLIMUS
     Dosage: UNK, (DOSE REDUCED)
     Route: 065

REACTIONS (7)
  - Hypovolaemia [Recovered/Resolved]
  - Immunosuppressant drug level increased [Unknown]
  - Disseminated blastomycosis [Recovered/Resolved]
  - Pulmonary blastomycosis [Recovered/Resolved]
  - Cutaneous blastomycosis [Recovered/Resolved]
  - Eye infection fungal [Recovered/Resolved]
  - Central nervous system fungal infection [Recovered/Resolved]
